FAERS Safety Report 8243443 (Version 3)
Quarter: 2013Q4

REPORT INFORMATION
  Report Type: Spontaneous
  Country: CA (occurrence: CA)
  Receive Date: 20111114
  Receipt Date: 20131016
  Transmission Date: 20140711
  Serious: No
  Sender: FDA-Public Use
  Company Number: CA-PFIZER INC-2011274754

PATIENT
  Age: 55 Year
  Sex: Female

DRUGS (5)
  1. DILANTIN [Suspect]
     Indication: EPILEPSY
     Dosage: 100 MG, 2X/DAY
     Route: 048
     Dates: end: 20111101
  2. AZITHROMYCIN [Concomitant]
     Indication: LYME DISEASE
     Dosage: 250 MG, 2X/DAY
     Route: 048
     Dates: start: 20111105
  3. AMOXIL [Concomitant]
     Indication: LYME DISEASE
     Dosage: 1500 MG, 2X/DAY
     Route: 048
  4. NEXIUM [Concomitant]
     Indication: GASTROOESOPHAGEAL REFLUX DISEASE
     Dosage: 40 MG, 1X/DAY
     Route: 048
     Dates: start: 20111027
  5. MEPRON [Concomitant]
     Indication: LYME DISEASE
     Dosage: 1125 MG, 2X/DAY
     Route: 048

REACTIONS (6)
  - Muscular weakness [Recovered/Resolved]
  - Hyperaesthesia [Recovered/Resolved]
  - Coordination abnormal [Recovered/Resolved]
  - Muscle spasms [Recovered/Resolved]
  - Parosmia [Recovered/Resolved]
  - Dizziness [Recovered/Resolved]
